FAERS Safety Report 13120513 (Version 3)
Quarter: 2017Q4

REPORT INFORMATION
  Report Type: Spontaneous
  Country: US (occurrence: US)
  Receive Date: 20170117
  Receipt Date: 20171128
  Transmission Date: 20180320
  Serious: Yes (Other)
  Sender: FDA-Public Use
  Company Number: US-PFIZER INC-2017015441

PATIENT
  Age: 62 Year
  Sex: Male

DRUGS (1)
  1. XELJANZ [Suspect]
     Active Substance: TOFACITINIB CITRATE
     Dosage: 5 MG, UNK
     Dates: start: 201609

REACTIONS (5)
  - Dyspnoea [Recovered/Resolved]
  - Fatigue [Unknown]
  - Systemic lupus erythematosus [Unknown]
  - Headache [Unknown]
  - Cardiac failure congestive [Recovered/Resolved]
